FAERS Safety Report 23351916 (Version 2)
Quarter: 2024Q1

REPORT INFORMATION
  Report Type: Spontaneous
  Country: IT (occurrence: IT)
  Receive Date: 20231229
  Receipt Date: 20240116
  Transmission Date: 20240410
  Serious: Yes (Other)
  Sender: FDA-Public Use
  Company Number: None

PATIENT
  Age: 72 Year
  Sex: Female

DRUGS (9)
  1. YERVOY [Suspect]
     Active Substance: IPILIMUMAB
     Indication: Product used for unknown indication
     Dosage: 2^ DOSE
     Route: 042
     Dates: start: 20230830, end: 20230830
  2. OPDIVO [Suspect]
     Active Substance: NIVOLUMAB
     Indication: Product used for unknown indication
     Dosage: 2^ DOSE
     Route: 042
     Dates: start: 20230830, end: 20230830
  3. BISOPROLOL [Concomitant]
     Active Substance: BISOPROLOL\BISOPROLOL FUMARATE
     Indication: Product used for unknown indication
  4. PAROXETINE [Concomitant]
     Active Substance: PAROXETINE
     Indication: Product used for unknown indication
  5. CREON [Concomitant]
     Active Substance: PANCRELIPASE AMYLASE\PANCRELIPASE LIPASE\PANCRELIPASE PROTEASE
     Indication: Product used for unknown indication
  6. HALCION [Concomitant]
     Active Substance: TRIAZOLAM
     Indication: Product used for unknown indication
  7. BEXSERO [Concomitant]
     Active Substance: NEISSERIA MENINGITIDIS GROUP B FHBP FUSION PROTEIN ANTIGEN\NEISSERIA MENINGITIDIS GROUP B NADA PROTE
     Indication: Product used for unknown indication
     Dates: start: 20230912, end: 20230912
  8. MENQUADFI [Concomitant]
     Active Substance: NEISSERIA MENINGITIDIS GROUP A CAPSULAR POLYSACCHARIDE TETANUS TOXOID CONJUGATE ANTIGEN\NEISSERIA ME
     Indication: Product used for unknown indication
  9. PANTOPRAZOLE SODIUM [Concomitant]
     Active Substance: PANTOPRAZOLE SODIUM
     Indication: Product used for unknown indication

REACTIONS (4)
  - Hepatotoxicity [Recovered/Resolved]
  - Asthenia [Recovered/Resolved]
  - Upper limb fracture [Unknown]
  - Fall [Unknown]

NARRATIVE: CASE EVENT DATE: 20230919
